FAERS Safety Report 4862021-4 (Version None)
Quarter: 2005Q4

REPORT INFORMATION
  Report Type: 
  Country: None (occurrence: None)
  Receive Date: 20051129
  Receipt Date: 20051010
  Transmission Date: 20060501
  Serious: Yes (Death, Hospitalization, Other)
  Sender: FDA-Public Use
  Company Number: US_0506119407

PATIENT
  Age: 51 Year
  Sex: Female
  Weight: 89 kg

DRUGS (13)
  1. ZYPREXA [Suspect]
     Indication: DEPRESSION
     Dosage: 20 MG/1 AT BEDTIME
     Dates: start: 20010801
  2. INSULIN HUMALOG (INSULIN LISPRO) [Concomitant]
  3. ALDACTONE [Concomitant]
  4. POTASSIUM [Concomitant]
  5. VALIUM [Concomitant]
  6. LASIX [Concomitant]
  7. LIBRAX [Concomitant]
  8. VITAMIN B-12 [Concomitant]
  9. CELEXA [Concomitant]
  10. TOPROL-XL [Concomitant]
  11. ZAROXOLYN [Concomitant]
  12. KLONOPIN [Concomitant]
  13. XANAX [Concomitant]

REACTIONS (15)
  - ACUTE PRERENAL FAILURE [None]
  - ATRIOVENTRICULAR BLOCK SECOND DEGREE [None]
  - BLOOD CHOLESTEROL INCREASED [None]
  - BRADYCARDIA [None]
  - CARDIO-RESPIRATORY ARREST [None]
  - DIABETES MELLITUS [None]
  - DYSPNOEA [None]
  - HYPERGLYCAEMIA [None]
  - HYPOGLYCAEMIA [None]
  - HYPOKALAEMIA [None]
  - HYPONATRAEMIA [None]
  - NAUSEA [None]
  - ORTHOSTATIC HYPOTENSION [None]
  - SYNCOPE [None]
  - VOMITING [None]
